FAERS Safety Report 7322594-9 (Version None)
Quarter: 2011Q1

REPORT INFORMATION
  Report Type: 
  Country: None (occurrence: None)
  Receive Date: 20110301
  Receipt Date: 20110225
  Transmission Date: 20110831
  Serious: Yes (Hospitalization, Other)
  Sender: FDA-Public Use
  Company Number: US-PFIZER INC-2009201097

PATIENT
  Sex: Male
  Weight: 84.807 kg

DRUGS (2)
  1. PRILOSEC [Concomitant]
     Dosage: UNK
  2. CHANTIX [Suspect]
     Indication: SMOKING CESSATION THERAPY
     Dosage: UNK
     Dates: start: 20090102, end: 20090301

REACTIONS (3)
  - SUICIDAL IDEATION [None]
  - DEPRESSION [None]
  - AGGRESSION [None]
